FAERS Safety Report 11732398 (Version 1)
Quarter: 2015Q4

REPORT INFORMATION
  Report Type: Spontaneous
  Country: US (occurrence: US)
  Receive Date: 20151110
  Receipt Date: 20151110
  Transmission Date: 20160304
  Serious: No
  Sender: FDA-Public Use
  Company Number: US-ELI_LILLY_AND_COMPANY-US201201002233

PATIENT
  Age: 83 Year
  Sex: Female

DRUGS (3)
  1. FORTEO [Suspect]
     Active Substance: TERIPARATIDE
     Indication: OSTEOPOROSIS
     Dosage: 20 UG, QD
     Route: 065
     Dates: start: 201111
  2. MUSCLE RELAXANTS [Concomitant]
     Active Substance: UNSPECIFIED INGREDIENT
  3. FORTEO [Suspect]
     Active Substance: TERIPARATIDE
     Dosage: 20 UG, QD
     Route: 065

REACTIONS (16)
  - Discomfort [Unknown]
  - Gait disturbance [Recovering/Resolving]
  - Musculoskeletal pain [Unknown]
  - Feeling abnormal [Unknown]
  - Pain [Not Recovered/Not Resolved]
  - Arthritis [Unknown]
  - Gait disturbance [Unknown]
  - Abdominal discomfort [Recovering/Resolving]
  - Arthralgia [Not Recovered/Not Resolved]
  - Fall [Unknown]
  - Peripheral swelling [Unknown]
  - Muscle spasms [Unknown]
  - Abdominal rigidity [Recovering/Resolving]
  - Back disorder [Unknown]
  - Abdominal pain upper [Recovering/Resolving]
  - Back pain [Unknown]

NARRATIVE: CASE EVENT DATE: 201111
